FAERS Safety Report 7899866-2 (Version None)
Quarter: 2011Q4

REPORT INFORMATION
  Report Type: 
  Country: None (occurrence: None)
  Receive Date: 20111107
  Receipt Date: 20110927
  Transmission Date: 20120403
  Serious: No
  Sender: FDA-Public Use
  Company Number: US-AMGEN-USASP2011046157

PATIENT
  Age: 48 Year
  Sex: Female
  Weight: 79.365 kg

DRUGS (1)
  1. ENBREL [Suspect]
     Indication: ANKYLOSING SPONDYLITIS
     Dosage: 50 MG, QWK
     Route: 058
     Dates: start: 20110628

REACTIONS (4)
  - HEAD DISCOMFORT [None]
  - LYMPHADENOPATHY [None]
  - RHINORRHOEA [None]
  - OROPHARYNGEAL PAIN [None]
